FAERS Safety Report 7454343-8 (Version None)
Quarter: 2011Q2

REPORT INFORMATION
  Report Type: 
  Country: None (occurrence: None)
  Receive Date: 20110503
  Receipt Date: 20110428
  Transmission Date: 20111010
  Serious: No
  Sender: FDA-Public Use
  Company Number: US-JNJFOC-20110412400

PATIENT
  Sex: Female

DRUGS (1)
  1. INVEGA SUSTENNA [Suspect]
     Indication: ILL-DEFINED DISORDER
     Route: 030

REACTIONS (2)
  - MALAISE [None]
  - INAPPROPRIATE SCHEDULE OF DRUG ADMINISTRATION [None]
